FAERS Safety Report 10579401 (Version 1)
Quarter: 2014Q4

REPORT INFORMATION
  Report Type: Spontaneous
  Country: IT (occurrence: IT)
  Receive Date: 20141112
  Receipt Date: 20141112
  Transmission Date: 20150529
  Serious: Yes (Hospitalization)
  Sender: FDA-Public Use
  Company Number: IT-BRISTOL-MYERS SQUIBB COMPANY-21567508

PATIENT
  Age: 85 Year
  Sex: Female

DRUGS (5)
  1. CARVEDILOL. [Concomitant]
     Active Substance: CARVEDILOL
  2. COUMADIN [Suspect]
     Active Substance: WARFARIN SODIUM
     Indication: ATRIAL FIBRILLATION
     Route: 048
  3. DIGOXIN. [Concomitant]
     Active Substance: DIGOXIN
  4. LUVION [Concomitant]
     Active Substance: CANRENONE
  5. LASIX [Concomitant]
     Active Substance: FUROSEMIDE

REACTIONS (3)
  - Abdominal pain [Unknown]
  - Overdose [Unknown]
  - Cardiac failure [Unknown]

NARRATIVE: CASE EVENT DATE: 20141104
